FAERS Safety Report 4928640-1 (Version None)
Quarter: 2006Q1

REPORT INFORMATION
  Report Type: 
  Country: None (occurrence: None)
  Receive Date: 20060227
  Receipt Date: 20060227
  Transmission Date: 20060701
  Serious: Yes (Other)
  Sender: FDA-Public Use
  Company Number: None

PATIENT
  Age: 46 Year
  Sex: Female
  Weight: 68.4932 kg

DRUGS (5)
  1. TORADOL [Suspect]
     Indication: MUSCULOSKELETAL CHEST PAIN
     Dosage: 60 MG  ONCE  IM
     Route: 030
     Dates: start: 20060223, end: 20060224
  2. NEURONTIN [Concomitant]
  3. ZANAFLEX [Concomitant]
  4. ROBAXIN [Concomitant]
  5. VALIUM [Concomitant]

REACTIONS (5)
  - ABDOMINAL PAIN UPPER [None]
  - DIARRHOEA [None]
  - DIARRHOEA HAEMORRHAGIC [None]
  - OEDEMA PERIPHERAL [None]
  - PALPITATIONS [None]
